FAERS Safety Report 11142547 (Version 2)
Quarter: 2015Q2

REPORT INFORMATION
  Report Type: Spontaneous
  Country: US (occurrence: US)
  Receive Date: 20150527
  Receipt Date: 20150612
  Transmission Date: 20150821
  Serious: Yes (Hospitalization)
  Sender: FDA-Public Use
  Company Number: US-ACTELION-A-NJ2015-118341

PATIENT
  Age: 24 Year
  Sex: Male

DRUGS (1)
  1. TRACLEER [Suspect]
     Active Substance: BOSENTAN\BOSENTAN MONOHYDRATE
     Indication: PULMONARY HYPERTENSION
     Dosage: 62.5 MG, BID
     Route: 048
     Dates: start: 20051014

REACTIONS (5)
  - Intestinal obstruction [Recovered/Resolved]
  - Abdominal pain upper [Recovered/Resolved]
  - Diarrhoea [Recovered/Resolved]
  - Food intolerance [Recovered/Resolved]
  - Constipation [Recovered/Resolved]
